FAERS Safety Report 22188856 (Version 1)
Quarter: 2023Q2

REPORT INFORMATION
  Report Type: Spontaneous
  Country: US (occurrence: US)
  Receive Date: 20230409
  Receipt Date: 20230409
  Transmission Date: 20230722
  Serious: No
  Sender: FDA-Public Use
  Company Number: US-FERRINGPH-2022FE03813

PATIENT
  Age: 80 Year
  Sex: Male

DRUGS (1)
  1. FIRMAGON [Suspect]
     Active Substance: DEGARELIX ACETATE
     Indication: Prostate cancer
     Dosage: UNK
     Route: 065
     Dates: start: 20220421

REACTIONS (4)
  - Incorrect dose administered [Recovered/Resolved]
  - Off label use [Recovered/Resolved]
  - Product use issue [Recovered/Resolved]
  - Off label use [Recovered/Resolved]

NARRATIVE: CASE EVENT DATE: 20220524
